FAERS Safety Report 6917349-0 (Version None)
Quarter: 2010Q3

REPORT INFORMATION
  Report Type: 
  Country: None (occurrence: None)
  Receive Date: 20100805
  Receipt Date: 20100723
  Transmission Date: 20110219
  Serious: Yes (Other)
  Sender: FDA-Public Use
  Company Number: 7012091

PATIENT
  Age: 37 Year
  Sex: Female

DRUGS (1)
  1. REBIF [Suspect]
     Indication: MULTIPLE SCLEROSIS
     Dosage: 44 MCG, 3 IN 1 WK, SUBCUTANEOUS
     Route: 058
     Dates: start: 20090725

REACTIONS (12)
  - CONFUSIONAL STATE [None]
  - CRYING [None]
  - DEPRESSION [None]
  - FALL [None]
  - FATIGUE [None]
  - FEAR [None]
  - HYPOAESTHESIA [None]
  - INJECTION SITE HAEMATOMA [None]
  - INJECTION SITE PAIN [None]
  - MEMORY IMPAIRMENT [None]
  - SUICIDAL IDEATION [None]
  - TREMOR [None]
